FAERS Safety Report 7669927 (Version 3)
Quarter: 2013Q1

REPORT INFORMATION
  Report Type: Spontaneous
  Country: US (occurrence: US)
  Receive Date: 20101116
  Receipt Date: 20130128
  Transmission Date: 20140127
  Serious: Yes (Other)
  Sender: FDA-Public Use
  Company Number: US-RB-005639-10

PATIENT
  Age: 44 None
  Sex: Female

DRUGS (5)
  1. SUBOXONE TABLET [Suspect]
     Indication: DRUG DEPENDENCE
     Route: 060
     Dates: start: 200810, end: 20100817
  2. SUBUTEX [Suspect]
     Indication: DRUG DEPENDENCE
     Route: 060
     Dates: start: 20100818
  3. VALIUM [Suspect]
     Indication: CONVULSION
     Route: 048
     Dates: end: 201001
  4. VALIUM [Suspect]
     Route: 048
     Dates: start: 201003, end: 201004
  5. VALIUM [Suspect]
     Route: 048
     Dates: start: 201004

REACTIONS (3)
  - Exposure during pregnancy [Recovered/Resolved]
  - Premature labour [Recovered/Resolved]
  - Premature delivery [Recovered/Resolved]
